FAERS Safety Report 9679083 (Version 1)
Quarter: 2013Q4

REPORT INFORMATION
  Report Type: Spontaneous
  Country: DE (occurrence: DE)
  Receive Date: 20131108
  Receipt Date: 20131108
  Transmission Date: 20140711
  Serious: Yes (Disabling, Other)
  Sender: FDA-Public Use
  Company Number: DE-B.I. PHARMACEUTICALS,INC./RIDGEFIELD-2013-BI-35690GD

PATIENT
  Age: 60 Year
  Sex: Male

DRUGS (2)
  1. PRAMIPEXOLE [Suspect]
     Indication: PARKINSON^S DISEASE
     Dosage: 2.1 MG
  2. MADOPAR [Suspect]
     Indication: PARKINSON^S DISEASE
     Dosage: 800 MG

REACTIONS (5)
  - Drug ineffective [Not Recovered/Not Resolved]
  - Dyskinesia [Not Recovered/Not Resolved]
  - Sleep apnoea syndrome [Unknown]
  - Somnolence [Unknown]
  - Gait disturbance [Unknown]
